FAERS Safety Report 14066104 (Version 1)
Quarter: 2017Q4

REPORT INFORMATION
  Report Type: Spontaneous
  Country: FR (occurrence: FR)
  Receive Date: 20171009
  Receipt Date: 20171009
  Transmission Date: 20180321
  Serious: Yes (Life-Threatening, Hospitalization)
  Sender: FDA-Public Use
  Company Number: FR-SA-2017SA190729

PATIENT
  Age: 79 Year
  Sex: Male

DRUGS (14)
  1. FLECAINE [Concomitant]
     Active Substance: FLECAINIDE
  2. EUPANTOL [Concomitant]
     Active Substance: PANTOPRAZOLE SODIUM
  3. LYRICA [Concomitant]
     Active Substance: PREGABALIN
  4. ALDACTAZINE [Interacting]
     Active Substance: ALTHIAZIDE\SPIRONOLACTONE
     Indication: OEDEMA PERIPHERAL
     Route: 065
     Dates: start: 20170814, end: 20170825
  5. MIANSERINE [Concomitant]
     Active Substance: MIANSERIN HYDROCHLORIDE
     Indication: DEPRESSION
     Route: 048
     Dates: end: 20170825
  6. AMLOR [Concomitant]
     Active Substance: AMLODIPINE BESYLATE
  7. APROVEL [Suspect]
     Active Substance: IRBESARTAN
     Indication: HYPERTENSION
     Route: 048
     Dates: end: 20170825
  8. ESIDREX [Interacting]
     Active Substance: HYDROCHLOROTHIAZIDE
     Indication: HYPERTENSION
     Route: 048
     Dates: start: 20170816
  9. LEVOTHYROX [Concomitant]
     Active Substance: LEVOTHYROXINE
  10. SERESTA [Concomitant]
     Active Substance: OXAZEPAM
  11. SEROPLEX [Interacting]
     Active Substance: ESCITALOPRAM OXALATE
     Indication: DEPRESSION
     Route: 048
     Dates: end: 20170825
  12. IMOVANE [Concomitant]
     Active Substance: ZOPICLONE
  13. ESIDREX [Interacting]
     Active Substance: HYDROCHLOROTHIAZIDE
     Indication: HYPERTENSION
     Route: 048
     Dates: end: 20170825
  14. XATRAL [Concomitant]
     Active Substance: ALFUZOSIN

REACTIONS (4)
  - Somnolence [Recovered/Resolved]
  - Asthenia [Recovering/Resolving]
  - Drug interaction [Unknown]
  - Hyponatraemia [Recovering/Resolving]

NARRATIVE: CASE EVENT DATE: 20170825
